FAERS Safety Report 24590729 (Version 3)
Quarter: 2024Q4

REPORT INFORMATION
  Report Type: Spontaneous
  Country: BR (occurrence: BR)
  Receive Date: 20241107
  Receipt Date: 20241129
  Transmission Date: 20250115
  Serious: Yes (Disabling, Other)
  Sender: NOVARTIS
  Company Number: BR-002147023-NVSC2024BR214621

PATIENT
  Age: 61 Year
  Sex: Female

DRUGS (2)
  1. SECUKINUMAB [Suspect]
     Active Substance: SECUKINUMAB
     Indication: Psoriasis
     Dosage: UNK, QMO (1 APPLICATION)
     Route: 058
     Dates: start: 201908
  2. SECUKINUMAB [Suspect]
     Active Substance: SECUKINUMAB
     Dosage: 300 MG (SINCE 2023)
     Route: 065
     Dates: start: 202105

REACTIONS (3)
  - Squamous cell carcinoma [Unknown]
  - Laryngeal cancer [Unknown]
  - Psoriasis [Unknown]

NARRATIVE: CASE EVENT DATE: 20240501
